FAERS Safety Report 4989351-X (Version None)
Quarter: 2006Q2

REPORT INFORMATION
  Report Type: 
  Country: None (occurrence: None)
  Receive Date: 20060426
  Receipt Date: 20060415
  Transmission Date: 20061013
  Serious: Yes (Hospitalization, Other)
  Sender: FDA-Public Use
  Company Number: 2006051177

PATIENT
  Sex: Female
  Weight: 63.5036 kg

DRUGS (6)
  1. NEURONTIN [Suspect]
     Indication: PAIN
  2. LYRICA [Suspect]
     Indication: NEURALGIA
     Dosage: 225 MG (75 MG, 3 IN 1 D)
     Dates: start: 20060101
  3. PLAVIX [Suspect]
     Indication: STENT PLACEMENT
     Dates: start: 20060401
  4. PROTONIX [Concomitant]
  5. LEVOTHROID [Concomitant]
  6. OXYCODONE (OXYCODONE) [Concomitant]

REACTIONS (7)
  - ABDOMINAL DISTENSION [None]
  - CONSTIPATION [None]
  - CORONARY ARTERIAL STENT INSERTION [None]
  - DIARRHOEA [None]
  - EUPHORIC MOOD [None]
  - GENERALISED OEDEMA [None]
  - PARTIAL SEIZURES [None]
